FAERS Safety Report 10705029 (Version 1)
Quarter: 2015Q1

REPORT INFORMATION
  Report Type: Spontaneous
  Country: US (occurrence: None)
  Receive Date: 20150108
  Receipt Date: 20150108
  Transmission Date: 20150721
  Serious: Yes (Hospitalization)
  Sender: FDA-Public Use
  Company Number: US-ALKEM-000803

PATIENT
  Age: 75 Year
  Sex: Female

DRUGS (1)
  1. HYDRALAZINE [Suspect]
     Active Substance: HYDRALAZINE HYDROCHLORIDE
     Indication: HYPERTENSION
     Dosage: 8.0HOURS

REACTIONS (10)
  - Haemoptysis [None]
  - Pleural effusion [None]
  - Pulmonary renal syndrome [None]
  - Dyspnoea [None]
  - Glomerulonephritis [None]
  - Haemoglobin decreased [None]
  - Leukocytosis [None]
  - Renal vasculitis [None]
  - Lymphopenia [None]
  - Pulmonary haemorrhage [None]
